FAERS Safety Report 7271131 (Version 2)
Quarter: 2013Q4

REPORT INFORMATION
  Report Type: Spontaneous
  Country: US (occurrence: None)
  Receive Date: 20100121
  Receipt Date: 20131119
  Transmission Date: 20140711
  Serious: Yes (Hospitalization)
  Sender: FDA-Public Use
  Company Number: 20100005

PATIENT
  Age: 55 Year
  Sex: Female

DRUGS (4)
  1. METHYLENE BLUE [Suspect]
     Indication: PARATHYROIDECTOMY
     Dosage: 7.5 MG/KG IN 100 ML
  2. CITALOPRAM [Suspect]
     Indication: PRODUCT USED FOR UNKNOWN INDICATION
  3. BUPROPION [Concomitant]
  4. CITALOPRAM [Suspect]

REACTIONS (7)
  - Encephalopathy [None]
  - Blindness cortical [None]
  - Vision blurred [None]
  - Eye movement disorder [None]
  - Drug interaction [None]
  - Serotonin syndrome [None]
  - Off label use [None]
